FAERS Safety Report 17197511 (Version 5)
Quarter: 2020Q2

REPORT INFORMATION
  Report Type: Spontaneous
  Country: US (occurrence: US)
  Receive Date: 20191224
  Receipt Date: 20200528
  Transmission Date: 20200713
  Serious: Yes (Hospitalization)
  Sender: FDA-Public Use
  Company Number: US-PFIZER INC-2019549582

PATIENT
  Age: 65 Year
  Sex: Female
  Weight: 160 kg

DRUGS (33)
  1. PULMICORT TURBUHALER [Concomitant]
     Active Substance: BUDESONIDE
     Dosage: 0.5 MG, 3X/DAY (0.5 MG/2 ML/INHALE 2 ML (0.5 MG TOTAL) BY NEBULIZATION THREE (3) TIMES A DAY)
  2. LASIX [Concomitant]
     Active Substance: FUROSEMIDE
     Dosage: 20 MG, ALTERNATE DAY(TAKE 20 MG BY MOUTH EVERY OTHER DAY)
     Route: 048
  3. LOPRESSOR [Concomitant]
     Active Substance: METOPROLOL TARTRATE
     Dosage: 50 MG, DAILY (140 OR ABOVE TAKE WHOLE, LESS THAN 140 TAKE HALF)
     Route: 048
  4. POTASSIUM [Concomitant]
     Active Substance: POTASSIUM
     Dosage: 99 MG, DAILY(TAKE 1 TABLET BY MOUTH DAILY WITH LUNCH)
     Route: 048
  5. PARAFON FORTE [Concomitant]
     Active Substance: CHLORZOXAZONE
     Indication: MUSCLE SPASMS
     Dosage: 500 MG, AS NEEDED (TAKE 500 MG BY MOUTH THREE (3) TIMES A DAY AS NEEDED)
     Route: 048
  6. SYNTHROID [Concomitant]
     Active Substance: LEVOTHYROXINE SODIUM
     Dosage: 100 UG, DAILY(TAKE 1 TABLLET (100 MCG TOTAL) BY MOUTH DAILY)
     Route: 048
     Dates: start: 2014
  7. ALBUTEROL. [Concomitant]
     Active Substance: ALBUTEROL
     Indication: WHEEZING
     Dosage: INHALE 3 ML (2.5 MG TOTAL) BY NEBULIZATION EVERY SIX (6) HOURS AS NEEDED FOR WHEEZING
  8. KLONOPIN [Concomitant]
     Active Substance: CLONAZEPAM
     Dosage: 0.5 MG, 2X/DAY(TAKE 1 TABLET BY MOUTH TWICE DAILY)
     Route: 048
     Dates: start: 2018
  9. FLUZONE HIGH-DOSE NOS [Concomitant]
     Active Substance: INFLUENZA A VIRUS A/CALIFORNIA/7/2009 X-179A (H1N1) ANTIGEN (FORMALDEHYDE INACTIVATED)\INFLUENZA A VIRUS A/VICTORIA/210/2009 X-187 (H3N2) ANTIGEN (FORMALDEHYDE INACTIVATED)\INFLUENZA B VIRUS B/BRISBANE/60/2008 ANTIGEN (FORMALDEHYDE INACTIVATED)
     Dosage: 180 MCG/0.5 ML, AS DIRECTED
     Dates: start: 2019
  10. ASPIRIN;CAFFEINE;SALICYLAMIDE [Concomitant]
     Dosage: 845 MG, AS NEEDED (TAKE 845 MG BY MOUTH DAILY)
     Route: 048
  11. PROPYLENE GLYCOL [Concomitant]
     Active Substance: PROPYLENE GLYCOL
     Dosage: 2 GTT, DAILY(ADMINISTER 2 DROPS TO BOTH EYES DAILY)
     Route: 047
  12. NORVASC [Concomitant]
     Active Substance: AMLODIPINE BESYLATE
     Dosage: 5 MG, DAILY
     Route: 048
  13. LIPITOR [Concomitant]
     Active Substance: ATORVASTATIN CALCIUM
     Indication: BLOOD CHOLESTEROL ABNORMAL
     Dosage: 20 MG, 1X/DAY(TAKE 1 TABLET BY MOUTH EVERY EVENING)
     Route: 048
  14. DULCOLAX NOS [Concomitant]
     Active Substance: BISACODYL OR DOCUSATE SODIUM
     Indication: CONSTIPATION
     Dosage: 5 MG, AS NEEDED (TAKE 5 MG BY MOUTH DAILY AS NEEDED)
     Route: 048
  15. PERFOROMIST [Concomitant]
     Active Substance: FORMOTEROL FUMARATE DIHYDRATE
     Dosage: 2 ML, 2X/DAY(INHALE 2 ML (20 MCG TOTAL) BY NEBULIZATION EVERY TWELVE (12) HOURS)
  16. ATROVENT [Concomitant]
     Active Substance: IPRATROPIUM BROMIDE
     Dosage: UNK, 3X/DAY(2 SPRAYS BY EACH NOSE ROUTE THREE (3) TIMES A DAY)
  17. OLOPATADINE. [Concomitant]
     Active Substance: OLOPATADINE
     Dosage: SPRAY 2 SPRAYS INTO EACH NOSTRIL TWICE DAILY
  18. TAB A VITE [Concomitant]
     Dosage: 1 DF, DAILY
     Route: 048
  19. ALBUTEROL. [Concomitant]
     Active Substance: ALBUTEROL
     Indication: DYSPNOEA
     Dosage: INHALE 2 PUFFS EVERY FOUR HOURS AS NEEDED
  20. PRISTIQ EXTENDED-RELEASE [Concomitant]
     Active Substance: DESVENLAFAXINE SUCCINATE
     Dosage: 50 MG, DAILY(TAKE 1 TABLET (50 MG TOTAL) BY MOUTH DAILY)
     Route: 048
  21. FLONASE [Concomitant]
     Active Substance: FLUTICASONE PROPIONATE
     Dosage: 50MCG/ ACT, : 2 SPRAYS BY EACH NOSE ROUTE DAILY
  22. NEURONTIN [Concomitant]
     Active Substance: GABAPENTIN
     Dosage: 300 MG, 3X/DAY(TAKE 300 MG BY MOUTH THREE (3) TIMES A DAY)
     Route: 048
  23. GUAIFENESIN. [Concomitant]
     Active Substance: GUAIFENESIN
     Dosage: 1200 MG, 2X/DAY(AKE 1,200 MG BY MOUTH TWO (2) TIMES A DAY)
     Route: 048
     Dates: start: 2010
  24. SINGULAIR [Concomitant]
     Active Substance: MONTELUKAST SODIUM
     Dosage: 10 MG, 1X/DAY
     Route: 048
  25. DOXYCYCLINE HYCLATE. [Suspect]
     Active Substance: DOXYCYCLINE HYCLATE
     Indication: SINUSITIS
     Dosage: DAILY
  26. XOPENEX [Concomitant]
     Active Substance: LEVALBUTEROL HYDROCHLORIDE
     Dosage: UNK, AS NEEDED(1.25 MG/3 ML /INHALE 1 AMPULE BY NEBULIZATION EVERY FOUR (4) HOURS AS NEEDED)
  27. TOPROL XL [Concomitant]
     Active Substance: METOPROLOL SUCCINATE
     Dosage: 50 MG, DAILY
     Route: 048
  28. PRILOSEC [Concomitant]
     Active Substance: OMEPRAZOLE MAGNESIUM
     Dosage: 40 MG, DAILY
     Route: 048
  29. DESYREL [Concomitant]
     Active Substance: TRAZODONE HYDROCHLORIDE
     Dosage: 200 MG, 1X/DAY
     Route: 048
  30. CHOLECALCIFEROL [Concomitant]
     Active Substance: CHOLECALCIFEROL
     Dosage: 1000 IU, DAILY (TAKE 1,000 UNITS BY MOUTH DAILY WITH LUNCH)
     Route: 048
  31. MAGNESIUM OXIDE. [Concomitant]
     Active Substance: MAGNESIUM OXIDE
     Dosage: 500 MG, 1X/DAY (TAKE 2 TABLETS BY MOUTH NIGHTLY)
     Route: 048
  32. REMERON [Concomitant]
     Active Substance: MIRTAZAPINE
     Dosage: 30 MG, 1X/DAY
     Route: 048
  33. MUPIROCIN CALCIUM. [Concomitant]
     Active Substance: MUPIROCIN CALCIUM
     Dosage: INTO EACH NOSTRIL. COMPOUNDED NASAL  SPRAY WITH SALINE

REACTIONS (5)
  - Headache [Recovered/Resolved]
  - Fatigue [Recovered/Resolved]
  - Malaise [Recovered/Resolved]
  - Drug hypersensitivity [Recovered/Resolved]
  - Gastrointestinal disorder [Recovered/Resolved]
